FAERS Safety Report 17335794 (Version 2)
Quarter: 2020Q1

REPORT INFORMATION
  Report Type: Spontaneous
  Country: JP (occurrence: JP)
  Receive Date: 20200128
  Receipt Date: 20200221
  Transmission Date: 20200409
  Serious: Yes (Other)
  Sender: FDA-Public Use
  Company Number: JP-TEVA-2020-JP-1177086

PATIENT
  Age: 63 Year
  Sex: Male
  Weight: 52.1 kg

DRUGS (16)
  1. LANSOPRAZOLE. [Concomitant]
     Active Substance: LANSOPRAZOLE
     Dates: start: 20190920
  2. YOKUKANSAN [Concomitant]
     Active Substance: HERBALS
     Dates: end: 20200114
  3. ENTACAPONE. [Concomitant]
     Active Substance: ENTACAPONE
  4. SODIUM CHLORIDE. [Suspect]
     Active Substance: SODIUM CHLORIDE
     Indication: HYPOTENSION
     Route: 048
     Dates: end: 20200117
  5. CILOSTAZOL. [Concomitant]
     Active Substance: CILOSTAZOL
     Dates: start: 20181107
  6. LYRICA [Concomitant]
     Active Substance: PREGABALIN
     Dates: start: 20191001, end: 20200110
  7. NAUZELIN [Concomitant]
     Active Substance: DOMPERIDONE
  8. EXCEGRAN [Concomitant]
     Active Substance: ZONISAMIDE
  9. CARCOPA [Concomitant]
     Active Substance: CARBIDOPA\LEVODOPA
  10. QUETIAPINE. [Concomitant]
     Active Substance: QUETIAPINE
     Dates: start: 20171006
  11. METHYCOBAL [Concomitant]
     Active Substance: METHYLCOBALAMIN
     Dates: start: 20190920, end: 20200114
  12. ALLOID G [Concomitant]
     Active Substance: SODIUM ALGINATE
     Dates: start: 20180427, end: 20200114
  13. AZILECT [Suspect]
     Active Substance: RASAGILINE MESYLATE
     Indication: PARKINSON^S DISEASE
     Dosage: 1 MILLIGRAM DAILY;
     Route: 065
     Dates: start: 20191106, end: 20200107
  14. DONEPEZIL HYDROCHLORIDE. [Concomitant]
     Active Substance: DONEPEZIL HYDROCHLORIDE
     Dates: start: 20190801
  15. MAGNESIUM OXIDE. [Concomitant]
     Active Substance: MAGNESIUM OXIDE
  16. GASMOTIN [Concomitant]
     Active Substance: MOSAPRIDE CITRATE
     Dates: end: 20200114

REACTIONS (10)
  - Dehydration [Unknown]
  - Cerebral infarction [Unknown]
  - Blood pressure increased [Recovering/Resolving]
  - Dysarthria [Not Recovered/Not Resolved]
  - Contusion [Unknown]
  - Depressed level of consciousness [Recovering/Resolving]
  - Consciousness fluctuating [Recovering/Resolving]
  - Hypernatraemia [Unknown]
  - Spinal compression fracture [Unknown]
  - Dysphagia [Unknown]

NARRATIVE: CASE EVENT DATE: 20200102
